FAERS Safety Report 7998629-7 (Version None)
Quarter: 2011Q4

REPORT INFORMATION
  Report Type: 
  Country: None (occurrence: None)
  Receive Date: 20111221
  Receipt Date: 20111215
  Transmission Date: 20120403
  Serious: Yes (Other)
  Sender: FDA-Public Use
  Company Number: US-ROCHE-797443

PATIENT
  Sex: Female
  Weight: 83.99 kg

DRUGS (1)
  1. ACCUTANE [Suspect]
     Indication: ACNE
     Dosage: DOSE RANGE: 40 MG TO 80 MG
     Route: 065

REACTIONS (9)
  - IRRITABLE BOWEL SYNDROME [None]
  - DEPRESSION [None]
  - XEROSIS [None]
  - CHEILITIS [None]
  - INFLAMMATORY BOWEL DISEASE [None]
  - COLITIS ULCERATIVE [None]
  - ALOPECIA [None]
  - BLEPHARITIS [None]
  - DERMATITIS [None]
